FAERS Safety Report 9079842 (Version 2)
Quarter: 2013Q2

REPORT INFORMATION
  Report Type: Spontaneous
  Country: JP (occurrence: JP)
  Receive Date: 20130215
  Receipt Date: 20130405
  Transmission Date: 20140414
  Serious: No
  Sender: FDA-Public Use
  Company Number: JP-GLAXOSMITHKLINE-B0867690A

PATIENT
  Age: 28 Year
  Sex: Female

DRUGS (10)
  1. LAMICTAL [Suspect]
     Indication: EPILEPSY
     Route: 048
     Dates: end: 20130102
  2. LAMICTAL [Suspect]
     Indication: EPILEPSY
     Dosage: 75MG TWICE PER DAY
     Route: 048
     Dates: start: 20130103
  3. TEGRETOL [Concomitant]
     Route: 048
  4. LIMAS [Concomitant]
     Route: 048
  5. BENZALIN [Concomitant]
     Route: 048
  6. MIRTAZAPINE [Concomitant]
     Route: 048
  7. SERENACE [Concomitant]
     Route: 065
  8. TASMOLIN [Concomitant]
     Route: 065
  9. FLUNITRAZEPAM [Concomitant]
     Route: 065
  10. ROZEREM [Concomitant]
     Route: 048

REACTIONS (3)
  - Mania [Not Recovered/Not Resolved]
  - Oedema [Not Recovered/Not Resolved]
  - Hyperkinesia [Unknown]
